FAERS Safety Report 6048959-3 (Version None)
Quarter: 2009Q1

REPORT INFORMATION
  Report Type: 
  Country: None (occurrence: None)
  Receive Date: 20090123
  Receipt Date: 20090113
  Transmission Date: 20090719
  Serious: Yes (Hospitalization, Other)
  Sender: FDA-Public Use
  Company Number: US-ABBOTT-09P-163-0497466-00

PATIENT
  Sex: Female
  Weight: 36.32 kg

DRUGS (16)
  1. HUMIRA [Suspect]
     Indication: CROHN'S DISEASE
     Route: 058
     Dates: start: 20070201, end: 20070201
  2. HUMIRA [Suspect]
     Route: 058
     Dates: start: 20070301, end: 20070301
  3. HUMIRA [Suspect]
     Route: 058
     Dates: start: 20070501, end: 20080101
  4. HUMIRA [Suspect]
     Route: 058
     Dates: start: 20080601, end: 20081001
  5. HUMIRA [Suspect]
     Route: 058
     Dates: start: 20081230
  6. METHOTREXATE [Concomitant]
     Indication: CROHN'S DISEASE
     Route: 030
  7. OXYCODONE HCL [Concomitant]
     Indication: PAIN
     Route: 048
  8. BENADRYL [Concomitant]
     Indication: DRUG USE FOR UNKNOWN INDICATION
     Dosage: TAKEN WITH OXYCODONE
     Route: 050
  9. CIPROFLOXACIN [Concomitant]
     Indication: CROHN'S DISEASE
     Route: 048
  10. FLAGYL [Concomitant]
     Indication: NAUSEA
     Route: 048
  11. NEXIUM [Concomitant]
     Indication: GASTROOESOPHAGEAL REFLUX DISEASE
     Route: 048
  12. METHADONE HCL [Concomitant]
     Indication: PAIN
  13. LACTOBACILLUS [Concomitant]
     Indication: CROHN'S DISEASE
     Route: 048
  14. MARINOL [Concomitant]
     Indication: NAUSEA
     Dosage: TAKEN WITH METHOTREXATE
     Route: 048
  15. TYLENOL (CAPLET) [Concomitant]
     Indication: PAIN
     Route: 048
  16. MIRALAX [Concomitant]
     Indication: BOWEL MOVEMENT IRREGULARITY
     Dosage: PRN, AS DIRECTED

REACTIONS (11)
  - ANOREXIA [None]
  - CATHETER RELATED INFECTION [None]
  - CROHN'S DISEASE [None]
  - DIARRHOEA [None]
  - INFECTION [None]
  - INTESTINAL STENOSIS [None]
  - NAUSEA [None]
  - PAIN [None]
  - PYREXIA [None]
  - VAGINAL DISCHARGE [None]
  - WEIGHT DECREASED [None]
